FAERS Safety Report 4832568-5 (Version None)
Quarter: 2005Q4

REPORT INFORMATION
  Report Type: 
  Country: None (occurrence: None)
  Receive Date: 20051121
  Receipt Date: 20051115
  Transmission Date: 20060501
  Serious: Yes (Other)
  Sender: FDA-Public Use
  Company Number: 2005AP05932

PATIENT
  Age: 72 Year
  Sex: Female

DRUGS (4)
  1. ATENOLOL [Suspect]
     Indication: HYPERTENSION
     Route: 048
     Dates: start: 20000101
  2. ATORVASTATIN CALCIUM [Interacting]
     Indication: HYPERCHOLESTEROLAEMIA
     Dates: start: 20040721, end: 20041222
  3. DILTIAZEM [Interacting]
     Indication: HYPERTENSION
     Dates: start: 20040601
  4. MADOPAR [Interacting]
     Indication: TREMOR
     Dosage: 25/100MG
     Route: 048
     Dates: start: 19990101

REACTIONS (2)
  - DRUG INTERACTION [None]
  - INTENTION TREMOR [None]
